FAERS Safety Report 6371124-7 (Version None)
Quarter: 2009Q3

REPORT INFORMATION
  Report Type: 
  Country: None (occurrence: None)
  Receive Date: 20090923
  Receipt Date: 20090918
  Transmission Date: 20100115
  Serious: Yes (Other)
  Sender: FDA-Public Use
  Company Number: US-MERCK-0909USA02825

PATIENT
  Age: 45 Year
  Sex: Female

DRUGS (4)
  1. SINGULAIR [Suspect]
     Indication: ASTHMA
     Route: 048
     Dates: start: 20090501
  2. ADVAIR HFA [Suspect]
     Indication: ASTHMA
     Route: 065
     Dates: start: 20040101, end: 20090601
  3. PREDNISONE [Concomitant]
     Indication: ASTHMA
     Route: 065
  4. CORTISONE [Concomitant]
     Route: 065

REACTIONS (8)
  - ARTHRALGIA [None]
  - BREAST DISCHARGE [None]
  - FATIGUE [None]
  - HEADACHE [None]
  - MYALGIA [None]
  - OEDEMA PERIPHERAL [None]
  - PHOTOSENSITIVITY REACTION [None]
  - VISUAL FIELD DEFECT [None]
